FAERS Safety Report 6137392-1 (Version None)
Quarter: 2009Q1

REPORT INFORMATION
  Report Type: 
  Country: None (occurrence: None)
  Receive Date: 20090326
  Receipt Date: 20090316
  Transmission Date: 20090719
  Serious: Yes (Other)
  Sender: FDA-Public Use
  Company Number: 2008AL012259

PATIENT
  Age: 52 Year
  Sex: Female
  Weight: 102.5129 kg

DRUGS (11)
  1. DIGOXIN [Suspect]
     Dosage: 0.125MG, DAILY, PO
     Route: 048
  2. SYNTHROID [Concomitant]
  3. LISINOPRIL [Concomitant]
  4. LIPITOR [Concomitant]
  5. ASPIRIN [Concomitant]
  6. NEXIUM [Concomitant]
  7. GABAPENTIN [Concomitant]
  8. METOPROLOL [Concomitant]
  9. AMOXICILLIN [Concomitant]
  10. FEXOFENADINE [Concomitant]
  11. SIMVASTATIN [Concomitant]

REACTIONS (14)
  - ABDOMINAL PAIN UPPER [None]
  - CARPAL TUNNEL SYNDROME [None]
  - COUGH [None]
  - DIZZINESS [None]
  - HEADACHE [None]
  - MAMMOGRAM ABNORMAL [None]
  - NAUSEA [None]
  - OROPHARYNGEAL PAIN [None]
  - PALPITATIONS [None]
  - RHINORRHOEA [None]
  - SINUS BRADYCARDIA [None]
  - SNEEZING [None]
  - VOMITING [None]
  - X-RAY GASTROINTESTINAL TRACT ABNORMAL [None]
